FAERS Safety Report 8933365 (Version 2)
Quarter: 2013Q2

REPORT INFORMATION
  Report Type: Spontaneous
  Country: US (occurrence: US)
  Receive Date: 20121128
  Receipt Date: 20130401
  Transmission Date: 20140414
  Serious: Yes (Hospitalization)
  Sender: FDA-Public Use
  Company Number: US-GILEAD-2012-0065257

PATIENT
  Sex: Male

DRUGS (8)
  1. LETAIRIS [Suspect]
     Indication: OBESITY
     Dosage: 5 MG, QD
     Route: 048
     Dates: start: 20120629
  2. LETAIRIS [Suspect]
     Indication: UNEVALUABLE EVENT
  3. LETAIRIS [Suspect]
     Indication: LIPIDS INCREASED
  4. LETAIRIS [Suspect]
     Indication: SLEEP APNOEA SYNDROME
  5. LETAIRIS [Suspect]
     Indication: PICKWICKIAN SYNDROME
  6. LETAIRIS [Suspect]
     Indication: HYPOXIA
  7. TYVASO [Concomitant]
  8. ADCIRCA [Concomitant]

REACTIONS (1)
  - Dyspnoea [Unknown]
